FAERS Safety Report 18760565 (Version 2)
Quarter: 2021Q1

REPORT INFORMATION
  Report Type: Spontaneous
  Country: DE (occurrence: DE)
  Receive Date: 20210120
  Receipt Date: 20210205
  Transmission Date: 20210419
  Serious: No
  Sender: FDA-Public Use
  Company Number: DE-ROCHE-2749174

PATIENT
  Age: 47 Year
  Sex: Female

DRUGS (4)
  1. CORTISONE [Suspect]
     Active Substance: CORTISONE
     Indication: PREMEDICATION
     Route: 065
     Dates: start: 2018
  2. OCREVUS [Suspect]
     Active Substance: OCRELIZUMAB
     Indication: MULTIPLE SCLEROSIS
     Route: 042
     Dates: start: 201806
  3. OCREVUS [Suspect]
     Active Substance: OCRELIZUMAB
     Route: 042
     Dates: start: 201903
  4. ANTIALLERGICS (UNK INGREDIENTS) [Suspect]
     Active Substance: UNSPECIFIED INGREDIENT
     Indication: PREMEDICATION
     Route: 065
     Dates: start: 2018

REACTIONS (12)
  - Bronchitis [Unknown]
  - Dizziness [Recovered/Resolved]
  - Hypoaesthesia [Recovered/Resolved]
  - Throat irritation [Unknown]
  - Influenza [Unknown]
  - Disturbance in attention [Recovered/Resolved]
  - Insomnia [Unknown]
  - Fatigue [Unknown]
  - Alopecia [Recovered/Resolved]
  - Aphasia [Recovered/Resolved]
  - Agitation [Unknown]
  - Sinusitis [Unknown]

NARRATIVE: CASE EVENT DATE: 201806
